FAERS Safety Report 7384589-9 (Version None)
Quarter: 2011Q1

REPORT INFORMATION
  Report Type: 
  Country: None (occurrence: None)
  Receive Date: 20110330
  Receipt Date: 20110316
  Transmission Date: 20110831
  Serious: Yes (Hospitalization)
  Sender: FDA-Public Use
  Company Number: DE-MYLANLABS-2011S1005777

PATIENT
  Age: 44 Year
  Sex: Female
  Weight: 60 kg

DRUGS (12)
  1. DIAZEPAM [Suspect]
     Indication: INTENTIONAL OVERDOSE
     Dosage: UP TO 200MG (MISSING PILL COUNT)
     Route: 048
  2. LAMOTRIGINE [Suspect]
     Route: 065
  3. LAMOTRIGINE [Suspect]
     Indication: INTENTIONAL OVERDOSE
     Dosage: UP TO 20G (MISSING PILL COUNT)
     Route: 048
  4. LAMOTRIGINE [Suspect]
     Indication: MAJOR DEPRESSION
     Dosage: UP TO 20G (MISSING PILL COUNT)
     Route: 048
  5. VENLAFAXINE [Suspect]
     Indication: INTENTIONAL OVERDOSE
     Dosage: UP TO 4.5G (MISSING PILL COUNT)
     Route: 048
  6. LAMOTRIGINE [Suspect]
     Route: 065
  7. DIAZEPAM [Suspect]
     Indication: MAJOR DEPRESSION
     Dosage: UP TO 200MG (MISSING PILL COUNT)
     Route: 048
  8. VENLAFAXINE [Suspect]
     Indication: MAJOR DEPRESSION
     Dosage: UP TO 4.5G (MISSING PILL COUNT)
     Route: 048
  9. DIAZEPAM [Suspect]
     Route: 065
  10. VENLAFAXINE [Suspect]
     Route: 065
  11. VENLAFAXINE [Suspect]
     Route: 065
  12. DIAZEPAM [Suspect]
     Route: 065

REACTIONS (4)
  - SEROTONIN SYNDROME [None]
  - GRAND MAL CONVULSION [None]
  - INTENTIONAL OVERDOSE [None]
  - LOSS OF CONSCIOUSNESS [None]
